FAERS Safety Report 24353849 (Version 2)
Quarter: 2025Q1

REPORT INFORMATION
  Report Type: Report from Study
  Country: US (occurrence: US)
  Receive Date: 20240923
  Receipt Date: 20250129
  Transmission Date: 20250408
  Serious: Yes (Hospitalization, Other)
  Sender: NOVARTIS
  Company Number: US-002147023-NVSC2024US177289

PATIENT
  Age: 77 Year
  Sex: Male

DRUGS (16)
  1. TAFINLAR [Suspect]
     Active Substance: DABRAFENIB MESYLATE
     Indication: Product used for unknown indication
     Dosage: 150 MG, BID
     Route: 065
     Dates: start: 20230902
  2. MEKINIST [Suspect]
     Active Substance: TRAMETINIB DIMETHYL SULFOXIDE
     Indication: Product used for unknown indication
     Route: 065
  3. ENCORAFENIB [Suspect]
     Active Substance: ENCORAFENIB
     Indication: Product used for unknown indication
     Route: 065
     Dates: start: 20230727
  4. ENCORAFENIB [Suspect]
     Active Substance: ENCORAFENIB
     Dosage: 75 MG, BID
     Route: 065
     Dates: start: 20230728
  5. ENCORAFENIB [Suspect]
     Active Substance: ENCORAFENIB
     Dosage: 75 MG, QD
     Route: 065
     Dates: start: 20230729
  6. ENCORAFENIB [Suspect]
     Active Substance: ENCORAFENIB
     Dosage: 75 MG, QD
     Route: 065
     Dates: start: 20230730, end: 20230805
  7. AMLODIPINE [Concomitant]
     Active Substance: AMLODIPINE BESYLATE
     Indication: Product used for unknown indication
     Dosage: 1 DOSAGE FORM, QD
     Route: 065
  8. ELIQUIS [Concomitant]
     Active Substance: APIXABAN
     Indication: Product used for unknown indication
     Dosage: 1 DOSAGE FORM, BID
     Route: 065
  9. FAMOTIDINE [Concomitant]
     Active Substance: FAMOTIDINE
     Indication: Product used for unknown indication
     Dosage: 1 DOSAGE FORM, QD
     Route: 065
  10. LISINOPRIL [Concomitant]
     Active Substance: LISINOPRIL
     Indication: Product used for unknown indication
     Dosage: 1 DOSAGE FORM, QD
     Route: 065
  11. MELATONIN [Concomitant]
     Active Substance: MELATONIN
     Indication: Product used for unknown indication
     Dosage: UNK, QD (HS)
     Route: 065
  12. PAROXETINE [Concomitant]
     Active Substance: PAROXETINE
     Indication: Product used for unknown indication
     Dosage: 1 DOSAGE FORM, QD
     Route: 065
  13. QUETIAPINE [Concomitant]
     Active Substance: QUETIAPINE
     Indication: Product used for unknown indication
     Dosage: UNK, QD (HS)
     Route: 065
  14. CRESTOR [Concomitant]
     Active Substance: ROSUVASTATIN CALCIUM
     Indication: Product used for unknown indication
     Dosage: 1 DOSAGE FORM, QD
     Route: 065
  15. MIRALAX [Concomitant]
     Active Substance: POLYETHYLENE GLYCOL 3350
     Indication: Product used for unknown indication
     Dosage: 1 DOSAGE FORM, (TABLESPOON) QD
     Route: 065
  16. PREDNISONE [Concomitant]
     Active Substance: PREDNISONE
     Indication: Product used for unknown indication
     Route: 065
     Dates: start: 20230729, end: 20230903

REACTIONS (10)
  - Respiratory failure [Not Recovered/Not Resolved]
  - Pneumonia mycoplasmal [Recovering/Resolving]
  - Recurrent cancer [Unknown]
  - Pneumonia [Unknown]
  - Toxic skin eruption [Unknown]
  - Papillary thyroid cancer [Unknown]
  - Adenocarcinoma [Unknown]
  - Asthenia [Recovering/Resolving]
  - Vocal cord paralysis [Unknown]
  - Lymphadenopathy mediastinal [Unknown]

NARRATIVE: CASE EVENT DATE: 20240713
